FAERS Safety Report 5141433-8 (Version None)
Quarter: 2006Q4

REPORT INFORMATION
  Report Type: 
  Country: None (occurrence: None)
  Receive Date: 20061026
  Receipt Date: 20061013
  Transmission Date: 20070319
  Serious: Yes (Other)
  Sender: FDA-Public Use
  Company Number: 2006BI014854

PATIENT
  Sex: Female

DRUGS (1)
  1. AVONEX [Suspect]
     Indication: DRUG USE FOR UNKNOWN INDICATION
     Dosage: IM
     Route: 030
     Dates: start: 19960101

REACTIONS (5)
  - COGNITIVE DISORDER [None]
  - INJECTION SITE ERYTHEMA [None]
  - MALAISE [None]
  - RENAL FAILURE [None]
  - STRESS [None]
